FAERS Safety Report 15249455 (Version 1)
Quarter: 2018Q3

REPORT INFORMATION
  Report Type: Spontaneous
  Country: US (occurrence: US)
  Receive Date: 20180807
  Receipt Date: 20180807
  Transmission Date: 20181010
  Serious: No
  Sender: FDA-Public Use
  Company Number: US-PERRIGO-18US002413

PATIENT
  Age: 81 Year
  Sex: Male
  Weight: 77.98 kg

DRUGS (4)
  1. ALBUTEROL                          /00139501/ [Concomitant]
     Active Substance: ALBUTEROL
     Indication: CHRONIC OBSTRUCTIVE PULMONARY DISEASE
     Dosage: UNKNOWN, UNKNOWN
     Route: 065
  2. SPIRIVA [Concomitant]
     Active Substance: TIOTROPIUM BROMIDE MONOHYDRATE
     Indication: CHRONIC OBSTRUCTIVE PULMONARY DISEASE
     Dosage: UNKNOWN, UNKNOWN
     Route: 065
  3. LORATADINE. [Suspect]
     Active Substance: LORATADINE
     Indication: COUGH
     Dosage: 10 MG, QD
     Route: 048
     Dates: start: 20180226, end: 20180227
  4. LORATADINE. [Suspect]
     Active Substance: LORATADINE
     Indication: PULMONARY CONGESTION

REACTIONS (2)
  - Off label use [Recovered/Resolved]
  - Dyspnoea [Recovering/Resolving]

NARRATIVE: CASE EVENT DATE: 20180226
